FAERS Safety Report 25894734 (Version 1)
Quarter: 2025Q4

REPORT INFORMATION
  Report Type: Spontaneous
  Country: EG (occurrence: EG)
  Receive Date: 20251008
  Receipt Date: 20251008
  Transmission Date: 20260118
  Serious: Yes (Other)
  Sender: HIKMA
  Company Number: EG-HIKMA PHARMACEUTICALS-EG-H14001-25-10956

PATIENT
  Age: 58 Year
  Sex: Male
  Weight: 70 kg

DRUGS (3)
  1. GEMCITABINE HYDROCHLORIDE [Suspect]
     Active Substance: GEMCITABINE HYDROCHLORIDE
     Indication: Bladder cancer
     Dosage: 1850 MILLIGRAM, ON DAYS 1, 8, AND 15 OF EACH 28-DAY (FOURTH CYCLE, DAY 1)
     Route: 041
     Dates: start: 20240814
  2. GEMCITABINE HYDROCHLORIDE [Suspect]
     Active Substance: GEMCITABINE HYDROCHLORIDE
     Dosage: 1850 MILLIGRAM, ON DAYS 1, 8, AND 15 OF EACH 28-DAY (FOURTH CYCLE, DAY 8)
     Route: 041
     Dates: start: 20240826
  3. CISPLATIN [Suspect]
     Active Substance: CISPLATIN
     Indication: Bladder cancer
     Dosage: 129.5 MILLIGRAM EVERY 28 DAYS, FOURTH CYCLE, DAY 1
     Route: 041
     Dates: start: 20250814

REACTIONS (2)
  - Neutropenia [Recovered/Resolved]
  - Leukopenia [Recovered/Resolved]

NARRATIVE: CASE EVENT DATE: 20250902
